FAERS Safety Report 4952217-5 (Version None)
Quarter: 2006Q1

REPORT INFORMATION
  Report Type: 
  Country: None (occurrence: None)
  Receive Date: 20060317
  Receipt Date: 20060308
  Transmission Date: 20060701
  Serious: Yes (Hospitalization, Other)
  Sender: FDA-Public Use
  Company Number: 2006-03-0583

PATIENT
  Age: 74 Year
  Sex: Male

DRUGS (1)
  1. INTRON A [Suspect]
     Indication: MULTIPLE MYELOMA
     Dosage: 3 MIU TIW SUBCUTANEOUS
     Route: 058
     Dates: start: 20041018

REACTIONS (12)
  - BRONCHOPNEUMONIA [None]
  - CACHEXIA [None]
  - DISEASE PROGRESSION [None]
  - FATIGUE [None]
  - MOBILITY DECREASED [None]
  - MUSCLE ATROPHY [None]
  - MYOPATHY [None]
  - ORAL INTAKE REDUCED [None]
  - PERFORMANCE STATUS DECREASED [None]
  - POLYNEUROPATHY [None]
  - PROSTATIC ADENOMA [None]
  - URINARY INCONTINENCE [None]
